FAERS Safety Report 6381617-4 (Version None)
Quarter: 2009Q3

REPORT INFORMATION
  Report Type: 
  Country: None (occurrence: None)
  Receive Date: 20090925
  Receipt Date: 20090914
  Transmission Date: 20100115
  Serious: Yes (Hospitalization)
  Sender: FDA-Public Use
  Company Number: APP200900596

PATIENT
  Age: 12 Year
  Sex: Male
  Weight: 43 kg

DRUGS (1)
  1. CEFTRIAXONE [Suspect]
     Indication: TONSILLITIS
     Dosage: 50 MG/KG PER DAY, 6 DAYS

REACTIONS (5)
  - ASTHENIA [None]
  - BLOOD IMMUNOGLOBULIN E INCREASED [None]
  - FATIGUE [None]
  - HEPATITIS TOXIC [None]
  - HYPERGLYCAEMIA [None]
